FAERS Safety Report 6632301-0 (Version None)
Quarter: 2010Q1

REPORT INFORMATION
  Report Type: 
  Country: None (occurrence: None)
  Receive Date: 20100312
  Receipt Date: 20100308
  Transmission Date: 20100710
  Serious: Yes (Life-Threatening, Congenital Anomaly, Other)
  Sender: FDA-Public Use
  Company Number: B0434087A

PATIENT
  Sex: Male

DRUGS (2)
  1. COMBIVIR [Suspect]
     Indication: HIV INFECTION
     Dates: start: 20060717
  2. VIRAMUNE [Suspect]
     Indication: HIV INFECTION
     Dosage: 400MG PER DAY
     Dates: start: 20060717

REACTIONS (11)
  - ASCITES [None]
  - CARDIOMYOPATHY [None]
  - CYTOMEGALOVIRUS INFECTION [None]
  - DEVELOPMENTAL DELAY [None]
  - DRUG EXPOSURE DURING PREGNANCY [None]
  - FOETAL-MATERNAL HAEMORRHAGE [None]
  - HAEMOGLOBIN DECREASED [None]
  - HYDROPS FOETALIS [None]
  - PERICARDIAL EFFUSION [None]
  - SMALL FOR DATES BABY [None]
  - ULTRASOUND ANTENATAL SCREEN ABNORMAL [None]
